FAERS Safety Report 12996697 (Version 1)
Quarter: 2016Q4

REPORT INFORMATION
  Report Type: Report from Study
  Country: JP (occurrence: JP)
  Receive Date: 20161204
  Receipt Date: 20161204
  Transmission Date: 20170207
  Serious: Yes (Death)
  Sender: FDA-Public Use
  Company Number: JP-MYLANLABS-2016M1052749

PATIENT

DRUGS (1)
  1. CISPLATIN. [Suspect]
     Active Substance: CISPLATIN
     Indication: SQUAMOUS CELL CARCINOMA OF HEAD AND NECK
     Dosage: 40MG/M2 WEEKLY
     Route: 065

REACTIONS (3)
  - Sepsis [Fatal]
  - Mucosal inflammation [Unknown]
  - Pneumonia aspiration [Fatal]
